FAERS Safety Report 4578958-X (Version None)
Quarter: 2005Q1

REPORT INFORMATION
  Report Type: 
  Country: None (occurrence: None)
  Receive Date: 20050121
  Receipt Date: 20040525
  Transmission Date: 20050727
  Serious: Yes (Hospitalization)
  Sender: FDA-Public Use
  Company Number: HQWYE113026MAY04

PATIENT
  Age: 30 Year
  Sex: Female
  Weight: 90.8 kg

DRUGS (2)
  1. NORPLANT SYSTEM [Suspect]
     Indication: CONTRACEPTION
     Dosage: 6 CAPSULES, SUBCUTANEOUS
     Route: 058
     Dates: start: 19920909, end: 19980424
  2. NORPLANT SYSTEM [Suspect]
     Indication: CONTRACEPTION
     Dosage: 6 CAPSULES, SUBCUTANEOUS
     Route: 058
     Dates: start: 19980424, end: 20030701

REACTIONS (3)
  - APPLICATION SITE INFECTION [None]
  - APPLICATION SITE SCAR [None]
  - COMPLICATION OF DEVICE REMOVAL [None]
